FAERS Safety Report 5958661-1 (Version None)
Quarter: 2008Q4

REPORT INFORMATION
  Report Type: 
  Country: None (occurrence: None)
  Receive Date: 20081110
  Receipt Date: 20081012
  Transmission Date: 20090506
  Serious: Yes (Death)
  Sender: FDA-Public Use
  Company Number: CHPA2008US18070

PATIENT
  Age: 82 Year
  Sex: Male

DRUGS (9)
  1. FERROUS SULFATE TAB [Suspect]
     Dosage: ORAL
     Route: 048
  2. CARDIAC GLYCOSIDES (NO INGREDIENTS/SUBSTANCES) [Suspect]
     Dosage: ORAL
     Route: 048
  3. CARVEDILOL [Suspect]
     Dosage: ORAL
     Route: 048
  4. POTASSIUM (POTASSIUM) [Suspect]
     Dosage: ORAL
     Route: 048
  5. FUROSEMIDE [Suspect]
     Dosage: ORAL
     Route: 048
  6. AMIODARONE HCL [Suspect]
     Dosage: ORAL
     Route: 048
  7. RAMIPRIL [Suspect]
     Dosage: ORAL
     Route: 048
  8. WARFARIN SODIUM [Suspect]
     Dosage: ORAL
     Route: 048
  9. FLUOXETINE [Suspect]
     Dosage: ORAL
     Route: 048

REACTIONS (2)
  - ADVERSE DRUG REACTION [None]
  - CARDIOACTIVE DRUG LEVEL ABOVE THERAPEUTIC [None]
